FAERS Safety Report 11977119 (Version 3)
Quarter: 2016Q1

REPORT INFORMATION
  Report Type: Spontaneous
  Country: JP (occurrence: JP)
  Receive Date: 20160129
  Receipt Date: 20160229
  Transmission Date: 20160526
  Serious: Yes (Hospitalization, Other)
  Sender: FDA-Public Use
  Company Number: JP-PFIZER INC-2016043003

PATIENT
  Age: 72 Year
  Sex: Male
  Weight: 44.5 kg

DRUGS (5)
  1. AROTINOLOL [Suspect]
     Active Substance: AROTINOLOL
     Indication: TREMOR
     Dosage: 10 MG, 1X/DAY
     Route: 048
     Dates: end: 20160111
  2. WARFARIN [Concomitant]
     Active Substance: WARFARIN
     Dosage: 0.5 MG, DAILY
     Route: 048
  3. HALFDIGOXIN [Suspect]
     Active Substance: DIGOXIN
     Indication: ATRIAL FIBRILLATION
     Dosage: 0.25 MG, 1X/DAY
     Route: 048
     Dates: end: 20160111
  4. XALKORI [Suspect]
     Active Substance: CRIZOTINIB
     Indication: LUNG ADENOCARCINOMA
     Dosage: 250 MG, 2X/DAY
     Route: 048
     Dates: start: 20160108, end: 20160111
  5. FUROSEMIDE. [Concomitant]
     Active Substance: FUROSEMIDE
     Dosage: 10 MG, DAILY
     Route: 048

REACTIONS (2)
  - Bradycardia [Recovering/Resolving]
  - Blood pressure decreased [Recovering/Resolving]

NARRATIVE: CASE EVENT DATE: 20160111
